FAERS Safety Report 16232942 (Version 5)
Quarter: 2020Q2

REPORT INFORMATION
  Report Type: Spontaneous
  Country: US (occurrence: US)
  Receive Date: 20190424
  Receipt Date: 20200414
  Transmission Date: 20200713
  Serious: Yes (Other)
  Sender: FDA-Public Use
  Company Number: US-PFIZER INC-2019169063

PATIENT
  Age: 66 Year
  Sex: Female

DRUGS (2)
  1. LYRICA [Suspect]
     Active Substance: PREGABALIN
     Indication: FIBROMYALGIA
     Dosage: 300 MG, DAILY
  2. LYRICA [Suspect]
     Active Substance: PREGABALIN
     Dosage: 150 MG, 3X/DAY
     Route: 048
     Dates: start: 20190215

REACTIONS (11)
  - Withdrawal syndrome [Unknown]
  - Intentional product use issue [Unknown]
  - Cold sweat [Unknown]
  - Wrist fracture [Unknown]
  - Fall [Unknown]
  - Mental impairment [Unknown]
  - Sleep terror [Unknown]
  - Aggression [Unknown]
  - Thinking abnormal [Unknown]
  - Wrong dose [Unknown]
  - Tremor [Unknown]
